FAERS Safety Report 14163681 (Version 5)
Quarter: 2018Q2

REPORT INFORMATION
  Report Type: Spontaneous
  Country: US (occurrence: US)
  Receive Date: 20171106
  Receipt Date: 20180525
  Transmission Date: 20180711
  Serious: No
  Sender: FDA-Public Use
  Company Number: US-ACTELION-A-US2017-162042

PATIENT
  Age: 57 Year
  Sex: Female

DRUGS (7)
  1. NAPROXEN. [Concomitant]
     Active Substance: NAPROXEN
     Dosage: UNK
  2. VIAGRA [Concomitant]
     Active Substance: SILDENAFIL CITRATE
  3. GABAPENTIN. [Concomitant]
     Active Substance: GABAPENTIN
     Dosage: UNK
  4. OXYGEN. [Concomitant]
     Active Substance: OXYGEN
  5. OPSUMIT [Suspect]
     Active Substance: MACITENTAN
     Indication: PULMONARY ARTERIAL HYPERTENSION
     Dosage: 10 MG, QD
     Route: 048
     Dates: start: 20171031
  6. SILDENAFIL. [Concomitant]
     Active Substance: SILDENAFIL
     Dosage: 20 MG, TID
     Route: 048
     Dates: start: 2011
  7. TYLENOL [Concomitant]
     Active Substance: ACETAMINOPHEN
     Dosage: UNK

REACTIONS (13)
  - Pruritus [Unknown]
  - Asthenia [Unknown]
  - Drug dose omission [Recovered/Resolved]
  - Energy increased [Not Recovered/Not Resolved]
  - Fatigue [Unknown]
  - Oxygen saturation increased [Not Recovered/Not Resolved]
  - Sinusitis [Unknown]
  - Hot flush [Recovering/Resolving]
  - Nasal congestion [Recovering/Resolving]
  - Ocular hyperaemia [Not Recovered/Not Resolved]
  - Nausea [Not Recovered/Not Resolved]
  - Nervousness [Not Recovered/Not Resolved]
  - Musculoskeletal stiffness [Unknown]

NARRATIVE: CASE EVENT DATE: 20171031
